FAERS Safety Report 9868069 (Version 3)
Quarter: 2014Q3

REPORT INFORMATION
  Report Type: Spontaneous
  Country: US (occurrence: US)
  Receive Date: 20140204
  Receipt Date: 20140923
  Transmission Date: 20150326
  Serious: Yes (Hospitalization, Other)
  Sender: FDA-Public Use
  Company Number: US-009507513-1402USA000689

PATIENT
  Sex: Female

DRUGS (1)
  1. NUVARING [Suspect]
     Active Substance: ETHINYL ESTRADIOL\ETONOGESTREL
     Indication: CONTRACEPTION
     Dosage: UNK
     Route: 067

REACTIONS (9)
  - Body tinea [Unknown]
  - Anxiety disorder [Unknown]
  - Deep vein thrombosis [Not Recovered/Not Resolved]
  - Fibromyalgia [Not Recovered/Not Resolved]
  - Insomnia [Unknown]
  - Road traffic accident [Unknown]
  - Arthralgia [Not Recovered/Not Resolved]
  - Pulmonary embolism [Unknown]
  - Migraine [Unknown]

NARRATIVE: CASE EVENT DATE: 2008
